FAERS Safety Report 24304558 (Version 1)
Quarter: 2024Q3

REPORT INFORMATION
  Report Type: Other
  Country: US (occurrence: US)
  Receive Date: 20240910
  Receipt Date: 20240910
  Transmission Date: 20241017
  Serious: No
  Sender: SIGMA TAU
  Company Number: US-LEADIANT BIOSCIENCES, INC.-2023STPI000332

PATIENT
  Sex: Male

DRUGS (1)
  1. MATULANE [Suspect]
     Active Substance: PROCARBAZINE HYDROCHLORIDE
     Indication: Hodgkin^s disease mixed cellularity stage III
     Dosage: 50 MILLIGRAMS, 4 CAPSULES (200MG TOTAL) ON DAYS 1-7 OF EACH 28-DAY CYCLE
     Route: 048
     Dates: start: 20230808

REACTIONS (3)
  - Dyspnoea [Unknown]
  - Vertigo [Unknown]
  - Heart rate irregular [Unknown]
